FAERS Safety Report 6264438-2 (Version None)
Quarter: 2009Q3

REPORT INFORMATION
  Report Type: 
  Country: None (occurrence: None)
  Receive Date: 20090709
  Receipt Date: 20090623
  Transmission Date: 20100115
  Serious: Yes (Life-Threatening)
  Sender: FDA-Public Use
  Company Number: OMPQ-NO-0906S-0436

PATIENT
  Age: 54 Year
  Sex: Female

DRUGS (7)
  1. OMNIPAQUE 300 [Suspect]
     Indication: AORTIC ANEURYSM
     Dosage: 100 ML, SINGLE DOSE, I.V.
     Route: 042
     Dates: start: 20090608, end: 20090608
  2. OMNIPAQUE 300 [Suspect]
     Indication: AORTIC DISSECTION
     Dosage: 100 ML, SINGLE DOSE, I.V.
     Route: 042
     Dates: start: 20090608, end: 20090608
  3. SODIUM ACETATE, POTASSIUM CHLORIDE, SODIUM CHLORIDE, MAGNESIUM CHLORID [Concomitant]
  4. INGREDIENT UNKNOWN [Concomitant]
  5. SODIUM CHLORIDE (SEISHOKU) [Concomitant]
  6. FAMOTIDINE [Concomitant]
  7. ... [Concomitant]

REACTIONS (4)
  - CARDIAC ARREST [None]
  - DISCOMFORT [None]
  - FLUSHING [None]
  - FOAMING AT MOUTH [None]
